FAERS Safety Report 15293060 (Version 2)
Quarter: 2018Q3

REPORT INFORMATION
  Report Type: Spontaneous
  Country: DE (occurrence: DE)
  Receive Date: 20180820
  Receipt Date: 20180827
  Transmission Date: 20181010
  Serious: Yes (Hospitalization, Other)
  Sender: FDA-Public Use
  Company Number: DE-BEH-2018093861

PATIENT
  Age: 9 Month
  Sex: Male
  Weight: 8.78 kg

DRUGS (2)
  1. BEXSERO [Suspect]
     Active Substance: MENINGOCOCCAL GROUP B VACCINE
     Indication: PROPHYLAXIS
     Dosage: .5 ML
     Route: 030
     Dates: start: 20180516, end: 20180516
  2. PRIVIGEN [Suspect]
     Active Substance: HUMAN IMMUNOGLOBULIN G
     Indication: PRODUCT USED FOR UNKNOWN INDICATION
     Dosage: 20 G, SINGLE
     Route: 042
     Dates: start: 20180531, end: 20180531

REACTIONS (18)
  - Pyrexia [Unknown]
  - Ocular hyperaemia [Unknown]
  - Enterococcal infection [Unknown]
  - Bronchitis [Unknown]
  - Pyrexia [Recovered/Resolved]
  - Cardiovascular disorder [Recovered/Resolved with Sequelae]
  - Nasal obstruction [Unknown]
  - Conjunctival hyperaemia [Recovering/Resolving]
  - Food refusal [Unknown]
  - Coronary artery aneurysm [Unknown]
  - Nasal crusting [Unknown]
  - Umbilical hernia [Unknown]
  - General physical health deterioration [Unknown]
  - Skin exfoliation [Recovering/Resolving]
  - Kawasaki^s disease [Recovered/Resolved with Sequelae]
  - Conjunctivitis [Recovering/Resolving]
  - Rash maculo-papular [Recovering/Resolving]
  - Candida nappy rash [Recovering/Resolving]

NARRATIVE: CASE EVENT DATE: 201805
